FAERS Safety Report 19806580 (Version 1)
Quarter: 2021Q3

REPORT INFORMATION
  Report Type: Spontaneous
  Country: CZ (occurrence: CZ)
  Receive Date: 20210908
  Receipt Date: 20210908
  Transmission Date: 20211014
  Serious: Yes (Hospitalization)
  Sender: FDA-Public Use
  Company Number: CZ-BAUSCH-BL-2021-029472

PATIENT
  Age: 75 Year
  Sex: Male

DRUGS (2)
  1. REVLIMID [Suspect]
     Active Substance: LENALIDOMIDE
     Indication: PRODUCT USED FOR UNKNOWN INDICATION
     Route: 065
     Dates: start: 20190829, end: 20210315
  2. DEXAMETHASONE. [Suspect]
     Active Substance: DEXAMETHASONE
     Indication: PRODUCT USED FOR UNKNOWN INDICATION
     Route: 065

REACTIONS (9)
  - Anaemia [Unknown]
  - Neutropenia [Unknown]
  - Creatinine renal clearance [Unknown]
  - Lymphopenia [Unknown]
  - Thrombocytopenia [Unknown]
  - Infection [Unknown]
  - Leukopenia [Unknown]
  - Neuropathy peripheral [Unknown]
  - Disease progression [Unknown]
